FAERS Safety Report 17281451 (Version 1)
Quarter: 2020Q1

REPORT INFORMATION
  Report Type: Spontaneous
  Country: US (occurrence: US)
  Receive Date: 20200117
  Receipt Date: 20200117
  Transmission Date: 20200409
  Serious: Yes (Other)
  Sender: FDA-Public Use
  Company Number: US-ACCORD-169607

PATIENT
  Age: 21 Year
  Sex: Male

DRUGS (2)
  1. MELPHALAN. [Suspect]
     Active Substance: MELPHALAN
     Indication: GERM CELL CANCER
     Dosage: EIGHT CYCLES
     Route: 013
  2. CARBOPLATIN. [Suspect]
     Active Substance: CARBOPLATIN
     Indication: GERM CELL CANCER
     Dosage: EIGHT CYCLES
     Route: 013

REACTIONS (4)
  - Visual acuity reduced [Unknown]
  - Fatigue [Unknown]
  - Hallucination, visual [Unknown]
  - Off label use [Unknown]
